FAERS Safety Report 8461224-X (Version None)
Quarter: 2012Q2

REPORT INFORMATION
  Report Type: 
  Country: None (occurrence: None)
  Receive Date: 20120619
  Receipt Date: 20120619
  Transmission Date: 20120825
  Serious: Yes (Hospitalization, Other)
  Sender: FDA-Public Use
  Company Number: None

PATIENT
  Sex: Female

DRUGS (2)
  1. ZOLOFT [Suspect]
     Indication: DEPRESSION
     Dosage: 500MG 2 TIMES A DAY PO
     Route: 048
  2. SEROQUEL [Suspect]
     Indication: DEPRESSION
     Dosage: 500MG 2 TIMES A DAY PO
     Route: 048

REACTIONS (7)
  - PHOTOSENSITIVITY REACTION [None]
  - PAIN [None]
  - PAIN IN EXTREMITY [None]
  - SOMNAMBULISM [None]
  - ABDOMINAL DISTENSION [None]
  - RASH [None]
  - JOINT STIFFNESS [None]
